FAERS Safety Report 24221931 (Version 2)
Quarter: 2024Q3

REPORT INFORMATION
  Report Type: Spontaneous
  Country: CN (occurrence: CN)
  Receive Date: 20240819
  Receipt Date: 20240827
  Transmission Date: 20241016
  Serious: Yes (Death, Life-Threatening, Hospitalization, Other)
  Sender: SANOFI AVENTIS
  Company Number: CN-MLMSERVICE-20240808-PI154511-00077-1

PATIENT
  Age: 43 Year
  Sex: Female

DRUGS (13)
  1. CAPECITABINE [Suspect]
     Active Substance: CAPECITABINE
     Indication: Breast cancer metastatic
     Dosage: 1.5 G, BID (D1-14, 3 SESSIONS)
     Dates: start: 2014, end: 2014
  2. CAPECITABINE [Suspect]
     Active Substance: CAPECITABINE
     Indication: Invasive breast carcinoma
     Dosage: 1 G, BID (D1-14, 2 SESSIONS)
     Dates: start: 20140926, end: 2014
  3. OXALIPLATIN [Suspect]
     Active Substance: OXALIPLATIN
     Indication: Breast cancer metastatic
     Dosage: QCY (0.2 D1 FOR 2 SESSIONS)
     Dates: start: 20140926, end: 2014
  4. OXALIPLATIN [Suspect]
     Active Substance: OXALIPLATIN
     Indication: Invasive breast carcinoma
  5. DOCETAXEL [Suspect]
     Active Substance: DOCETAXEL\DOCETAXEL ANHYDROUS
     Indication: Breast cancer metastatic
     Dosage: 100 MG(D1, FOUR SESSIONS)
     Dates: start: 201401, end: 2014
  6. DOCETAXEL [Suspect]
     Active Substance: DOCETAXEL\DOCETAXEL ANHYDROUS
     Indication: Invasive breast carcinoma
  7. CISPLATIN [Suspect]
     Active Substance: CISPLATIN
     Indication: Breast cancer metastatic
     Dosage: 120 MG(D1, FOUR SESSIONS)
     Dates: start: 201401, end: 2014
  8. CISPLATIN [Suspect]
     Active Substance: CISPLATIN
     Indication: Invasive breast carcinoma
  9. RIVOCERANIB [Suspect]
     Active Substance: RIVOCERANIB
     Indication: Breast cancer metastatic
     Dosage: UNK
     Dates: start: 201502
  10. RIVOCERANIB [Suspect]
     Active Substance: RIVOCERANIB
     Indication: Targeted cancer therapy
  11. RIVOCERANIB [Suspect]
     Active Substance: RIVOCERANIB
     Indication: Invasive breast carcinoma
  12. FLUOROURACIL [Suspect]
     Active Substance: FLUOROURACIL
     Indication: Breast cancer metastatic
     Dosage: QCY(0.75 D1-5, FOUR SESSIONS)
     Dates: start: 201401, end: 2014
  13. FLUOROURACIL [Suspect]
     Active Substance: FLUOROURACIL
     Indication: Invasive breast carcinoma

REACTIONS (3)
  - Pneumonia [Fatal]
  - Myelosuppression [Fatal]
  - Sepsis [Fatal]
